FAERS Safety Report 5974343-4 (Version None)
Quarter: 2008Q4

REPORT INFORMATION
  Report Type: 
  Country: None (occurrence: None)
  Receive Date: 20081128
  Receipt Date: 20081117
  Transmission Date: 20090506
  Serious: Yes (Other)
  Sender: FDA-Public Use
  Company Number: 2008-187144-NL

PATIENT
  Age: 28 Year
  Sex: Female
  Weight: 106 kg

DRUGS (4)
  1. IMPLANON [Suspect]
     Indication: CONTRACEPTION
     Dosage: SUBDERMAL
     Route: 059
     Dates: start: 20081028
  2. SYNTHROID [Concomitant]
  3. REGLAN [Concomitant]
  4. PREVACID [Concomitant]

REACTIONS (4)
  - IMPLANT SITE HAEMATOMA [None]
  - IMPLANT SITE NECROSIS [None]
  - IMPLANT SITE REACTION [None]
  - SCAB [None]
